FAERS Safety Report 9187049 (Version 2)
Quarter: 2013Q1

REPORT INFORMATION
  Report Type: Report from Study
  Country: US (occurrence: US)
  Receive Date: 20130325
  Receipt Date: 20130328
  Transmission Date: 20140127
  Serious: Yes (Hospitalization, Other)
  Sender: FDA-Public Use
  Company Number: US-BAXTER-2013BAX010002

PATIENT
  Age: 74 None
  Sex: Female
  Weight: 70.45 kg

DRUGS (19)
  1. GAMMAGARD LIQUID [Suspect]
     Indication: DERMATOMYOSITIS
     Route: 042
     Dates: start: 2007, end: 201208
  2. GAMMAGARD LIQUID [Suspect]
     Indication: OFF LABEL USE
     Route: 042
     Dates: start: 201212, end: 201301
  3. CELLCEPT [Suspect]
     Indication: DERMATOMYOSITIS
     Route: 065
     Dates: start: 2012, end: 201208
  4. HYDRALAZINE [Concomitant]
     Indication: HYPERTENSION
     Route: 048
  5. LOPRESSOR [Concomitant]
     Indication: HYPERTENSION
     Route: 048
  6. PROCARDIA [Concomitant]
     Indication: HYPERTENSION
     Route: 048
  7. EXFORGE [Concomitant]
     Indication: HYPERTENSION
     Route: 048
     Dates: end: 201209
  8. PREDNISONE [Concomitant]
     Indication: DERMATOMYOSITIS
     Route: 048
     Dates: start: 2006, end: 201208
  9. PREDNISONE [Concomitant]
     Route: 048
     Dates: start: 201208
  10. LEVOTHYROXINE [Concomitant]
     Indication: PRODUCT USED FOR UNKNOWN INDICATION
     Route: 048
  11. PAXIL [Concomitant]
     Indication: PRODUCT USED FOR UNKNOWN INDICATION
     Route: 048
  12. ATIVAN [Concomitant]
     Indication: PRODUCT USED FOR UNKNOWN INDICATION
     Route: 048
  13. AMBIEN [Concomitant]
     Indication: PRODUCT USED FOR UNKNOWN INDICATION
     Route: 048
  14. ASPIRIN [Concomitant]
     Indication: PRODUCT USED FOR UNKNOWN INDICATION
     Route: 048
  15. ALLEGRA [Concomitant]
     Indication: PRODUCT USED FOR UNKNOWN INDICATION
     Route: 048
  16. VITAMIN D [Concomitant]
     Indication: PRODUCT USED FOR UNKNOWN INDICATION
     Route: 048
  17. CALCIUM [Concomitant]
     Indication: PRODUCT USED FOR UNKNOWN INDICATION
     Route: 048
  18. MULTIVITAMIN [Concomitant]
     Indication: PRODUCT USED FOR UNKNOWN INDICATION
     Route: 048
  19. SUPER B COMPLEX [Concomitant]
     Indication: PRODUCT USED FOR UNKNOWN INDICATION
     Route: 048

REACTIONS (3)
  - Toxoplasmosis [Recovered/Resolved]
  - Pneumonia [Recovered/Resolved]
  - Immunodeficiency [Not Recovered/Not Resolved]
